FAERS Safety Report 12613844 (Version 1)
Quarter: 2016Q3

REPORT INFORMATION
  Report Type: Spontaneous
  Country: US (occurrence: US)
  Receive Date: 20160802
  Receipt Date: 20160802
  Transmission Date: 20161109
  Serious: No
  Sender: FDA-Public Use
  Company Number: US-PFIZER INC-2015433551

PATIENT
  Age: 64 Year
  Sex: Female
  Weight: 71.21 kg

DRUGS (15)
  1. IBRANCE [Suspect]
     Active Substance: PALBOCICLIB
     Indication: BREAST CANCER FEMALE
     Dosage: 125 MG, CYCLIC, ONE CAP BY MOUTH DAILY FOR 21DAYS ON FOLLOW BY 7 DAYS OFF
     Route: 048
     Dates: start: 20151120
  2. VITAMIN D [Concomitant]
     Active Substance: CHOLECALCIFEROL
     Dosage: UNK, 50,000 UNIT CAPSULE)
  3. ARIMIDEX [Concomitant]
     Active Substance: ANASTROZOLE
     Dosage: UNK, 1 MG TABLET
  4. PERCOCET [Concomitant]
     Active Substance: ACETAMINOPHEN\OXYCODONE HYDROCHLORIDE
     Dosage: UNK, 5 MG-ACETAMINOPHEN 325MG
  5. ADVIL [Concomitant]
     Active Substance: IBUPROFEN
     Dosage: UNK, 800 MG TABLET
  6. PRINIVIL [Concomitant]
     Active Substance: LISINOPRIL
     Dosage: UNK, 5 MG TABLET
  7. NEPHROCAPS [Concomitant]
     Active Substance: ASCORBIC ACID\BIOTIN\CYANOCOBALAMIN\FOLIC ACID\NIACIN\PANTOTHENIC ACID\PYRIDOXINE\RIBOFLAVIN\THIAMINE
     Dosage: UNK, 1 MG CAPSULE
  8. ZOFRAN [Concomitant]
     Active Substance: ONDANSETRON HYDROCHLORIDE
     Dosage: UNK, 8 MG TABLET
  9. ALEVE [Concomitant]
     Active Substance: NAPROXEN SODIUM
     Dosage: UNK
     Route: 048
  10. FEMARA [Concomitant]
     Active Substance: LETROZOLE
     Dosage: UNK, 2.5 MG TABLET
  11. MOTRIN [Concomitant]
     Active Substance: IBUPROFEN
     Dosage: UNK, 800 MG TABLET
  12. ZESTRIL [Concomitant]
     Active Substance: LISINOPRIL
     Dosage: UNK, 5 MG TABLET
  13. LIPITOR [Concomitant]
     Active Substance: ATORVASTATIN CALCIUM
     Dosage: UNK, 10 MG TABLET
  14. PRILOSEC [Concomitant]
     Active Substance: OMEPRAZOLE MAGNESIUM
     Dosage: UNK, 20 MG CAPSULE
  15. VITAMIN B12 [Concomitant]
     Active Substance: CYANOCOBALAMIN
     Dosage: UNK, 1,000 MCG TABLET

REACTIONS (3)
  - Bone pain [Not Recovered/Not Resolved]
  - Gait disturbance [Not Recovered/Not Resolved]
  - Product use issue [Unknown]
